FAERS Safety Report 5722157-2 (Version None)
Quarter: 2008Q2

REPORT INFORMATION
  Report Type: 
  Country: None (occurrence: None)
  Receive Date: 20080429
  Receipt Date: 20080417
  Transmission Date: 20081010
  Serious: Yes (Hospitalization, Other)
  Sender: FDA-Public Use
  Company Number: US-PFIZER INC-2008035797

PATIENT
  Sex: Male

DRUGS (5)
  1. DILANTIN [Suspect]
     Indication: CONVULSION
  2. CHANTIX [Suspect]
     Indication: SMOKING CESSATION THERAPY
  3. PHENOBARBITAL TAB [Concomitant]
     Indication: CONVULSION
  4. LITHIUM CARBONATE [Concomitant]
  5. MONOPRIL [Concomitant]

REACTIONS (8)
  - BACK INJURY [None]
  - CHANGE OF BOWEL HABIT [None]
  - CONVULSION [None]
  - DRUG DOSE OMISSION [None]
  - GINGIVAL HYPERPLASIA [None]
  - MUSCLE TWITCHING [None]
  - OVERDOSE [None]
  - ROAD TRAFFIC ACCIDENT [None]
